FAERS Safety Report 15672942 (Version 1)
Quarter: 2018Q4

REPORT INFORMATION
  Report Type: Report from Study
  Country: US (occurrence: US)
  Receive Date: 20181129
  Receipt Date: 20181129
  Transmission Date: 20190205
  Serious: No
  Sender: FDA-Public Use
  Company Number: US-TESARO, INC.-2018-TSO0765-US

PATIENT
  Sex: Female

DRUGS (2)
  1. ZEJULA [Suspect]
     Active Substance: NIRAPARIB
     Indication: OVARIAN CANCER
     Dosage: 200 MG (2 CAPSULES OF 100 MG BY MOUTH ONCE DAILY), QPM (EVERY EVENING AT 7 PM WITHOUT FOOD)
     Route: 048
     Dates: start: 20180920
  2. LIPITOR [Concomitant]
     Active Substance: ATORVASTATIN CALCIUM
     Indication: PRODUCT USED FOR UNKNOWN INDICATION

REACTIONS (12)
  - Asthenia [Not Recovered/Not Resolved]
  - Agitation [Unknown]
  - Diarrhoea [Not Recovered/Not Resolved]
  - Dyspnoea [Not Recovered/Not Resolved]
  - Myalgia [Unknown]
  - Flushing [Not Recovered/Not Resolved]
  - Memory impairment [Unknown]
  - Initial insomnia [Recovered/Resolved]
  - Parosmia [Unknown]
  - Headache [Unknown]
  - Fatigue [Unknown]
  - Aggression [Not Recovered/Not Resolved]
